FAERS Safety Report 22246347 (Version 2)
Quarter: 2023Q2

REPORT INFORMATION
  Report Type: Spontaneous
  Country: US (occurrence: US)
  Receive Date: 20230424
  Receipt Date: 20230427
  Transmission Date: 20230721
  Serious: Yes (Hospitalization, Other)
  Sender: FDA-Public Use
  Company Number: US-PFIZER INC-202300165240

PATIENT
  Age: 65 Year
  Sex: Female

DRUGS (1)
  1. IBRANCE [Suspect]
     Active Substance: PALBOCICLIB
     Dosage: 100 MG, CYCLIC (100MG BY MOUTH DAILY FOR 21 DAYS THEN 7 DAYS OFF. REPEAT EVERY 28 DAYS)
     Route: 048

REACTIONS (12)
  - Haemoglobin decreased [Unknown]
  - Red blood cell count decreased [Unknown]
  - White blood cell count decreased [Unknown]
  - Fall [Unknown]
  - Foot fracture [Unknown]
  - Tibia fracture [Unknown]
  - Asthenia [Unknown]
  - Joint instability [Unknown]
  - Dizziness [Unknown]
  - Hypotension [Unknown]
  - Renal impairment [Unknown]
  - Fatigue [Unknown]

NARRATIVE: CASE EVENT DATE: 20230325
